FAERS Safety Report 4377306-8 (Version None)
Quarter: 2004Q2

REPORT INFORMATION
  Report Type: 
  Country: None (occurrence: None)
  Receive Date: 20040609
  Receipt Date: 20040420
  Transmission Date: 20050107
  Serious: No
  Sender: FDA-Public Use
  Company Number: 2004209917US

PATIENT
  Sex: Female

DRUGS (1)
  1. BEXTRA [Suspect]

REACTIONS (7)
  - FLATULENCE [None]
  - HEADACHE [None]
  - LIMB DISCOMFORT [None]
  - NAUSEA [None]
  - OPEN WOUND [None]
  - PAIN IN EXTREMITY [None]
  - WEIGHT INCREASED [None]
